FAERS Safety Report 7438763-3 (Version None)
Quarter: 2011Q2

REPORT INFORMATION
  Report Type: 
  Country: None (occurrence: None)
  Receive Date: 20110426
  Receipt Date: 20110329
  Transmission Date: 20111010
  Serious: Yes (Death, Hospitalization)
  Sender: FDA-Public Use
  Company Number: KR-BAYER-2011-013884

PATIENT
  Age: 63 Year
  Sex: Female
  Weight: 63 kg

DRUGS (32)
  1. GODEK [Concomitant]
     Indication: BLOOD BILIRUBIN INCREASED
  2. HYDROCORTISONE [Concomitant]
     Dosage: 118 ML, BID
     Dates: start: 20101019, end: 20110205
  3. ACETAMINOPHEN [Concomitant]
     Dosage: 650 MG, PRN
     Dates: start: 20101208, end: 20101208
  4. LOPERAMIDE [Concomitant]
     Dosage: 1 MG, PRN
     Dates: start: 20101204, end: 20101205
  5. AMLODIPINE BESILATE [Concomitant]
     Indication: HYPERTENSION
     Dosage: 5 MG, QD
     Dates: start: 20100701, end: 20100723
  6. METHYLPREDNISOLONE ACEPONATE [Concomitant]
     Indication: PALMAR-PLANTAR ERYTHRODYSAESTHESIA SYNDROME
     Dosage: 10 MG, BID
     Dates: start: 20101019, end: 20110205
  7. SPIRONOLACTONE [Concomitant]
     Dosage: 50 MG, BID
     Dates: start: 20110122, end: 20110205
  8. OXYCONTIN [Concomitant]
     Indication: GROIN PAIN
     Dosage: 20 MG, BID
     Dates: start: 20110106
  9. CENTRUM [Concomitant]
     Indication: VITAMIN SUPPLEMENTATION
     Dosage: 1 TABLET (1 TABLET, 1 IN 1 D)
     Dates: start: 20100518, end: 20110205
  10. GODEK [Concomitant]
     Indication: ASPARTATE AMINOTRANSFERASE INCREASED
     Dosage: 150 MG, BID
     Dates: start: 20100616, end: 20110205
  11. LOSARTAN POTASSIUM [Concomitant]
     Indication: HYPERTENSION
     Dosage: 1 TABLET (1 TABLET, 1 IN 1 D)
     Dates: start: 20100724, end: 20101015
  12. PANPUR [PANCREATIN] [Concomitant]
     Indication: DYSPEPSIA
     Dosage: 3 TABLETS (1 TABLET, 3 IN 1 D)
     Dates: start: 20101103, end: 20101208
  13. SILYBUM MARIANUM [Concomitant]
     Indication: HEPATITIS
     Dosage: 140 MG, BID
     Dates: start: 20100518, end: 20110205
  14. ACETAMINOPHEN [Concomitant]
     Indication: FLANK PAIN
     Dosage: 650 MG, PRN
     Dates: start: 20101206, end: 20101206
  15. PHAZYME-95 [AMYLASE,LIPASE,PROTEASE,SIMETICONE] [Concomitant]
     Indication: DYSPEPSIA
     Dosage: 3 TABLET (1 TABLET, 3 IN 1 D)
     Dates: start: 20101208, end: 20110205
  16. PHAZYME-95 [AMYLASE,LIPASE,PROTEASE,SIMETICONE] [Concomitant]
     Indication: ABDOMINAL DISTENSION
  17. OXYCODONE HYDROCHLORIDE [Concomitant]
     Dosage: 5 MG, PRN
     Dates: start: 20101217, end: 20110105
  18. SORAFENIB (RAF KINASE INHIBITOR) [Suspect]
     Indication: HEPATIC NEOPLASM MALIGNANT
     Dosage: 400 MG, BID
     Route: 048
     Dates: start: 20100611, end: 20110105
  19. MEGESTROL ACETATE [Concomitant]
     Indication: DECREASED APPETITE
     Dosage: 10 ML, BID
     Dates: start: 20100616, end: 20110205
  20. HYDROCORTISONE [Concomitant]
     Indication: PALMAR-PLANTAR ERYTHRODYSAESTHESIA SYNDROME
     Dosage: 118 ML, BID
     Dates: start: 20100902, end: 20101011
  21. OMEPRAZOLE [Concomitant]
     Indication: DYSPEPSIA
     Dosage: 20 MG, BID
     Dates: start: 20101123, end: 20110205
  22. ENTECAVIR [Concomitant]
     Indication: HEPATITIS
     Dosage: 0.5 MG, QD
     Dates: start: 20100518, end: 20110205
  23. AMLODIPINE BESILATE [Concomitant]
     Dosage: 5 MG, QD
     Dates: start: 20101016, end: 20110205
  24. METOCLOPRAMIDE HYDROCHLORIDE [Concomitant]
     Indication: DYSPEPSIA
     Dosage: 5 MG, TID
     Dates: start: 20101208, end: 20110205
  25. SPIRONOLACTONE [Concomitant]
     Indication: ABDOMINAL DISTENSION
     Dosage: 25 MG, BID
     Dates: start: 20101208, end: 20110114
  26. OXYCODONE HYDROCHLORIDE [Concomitant]
     Indication: ABDOMINAL PAIN
     Dosage: 5 MG, PRN
     Dates: start: 20101212, end: 20101212
  27. OXYCODONE HYDROCHLORIDE [Concomitant]
     Dosage: 10 MG, PRN
     Dates: start: 20110105, end: 20110205
  28. METOCLOPRAMIDE HYDROCHLORIDE [Concomitant]
     Indication: ABDOMINAL DISTENSION
  29. SPIRONOLACTONE [Concomitant]
     Indication: OEDEMA PERIPHERAL
     Dosage: 50 MG, QD
     Dates: start: 20110115, end: 20110121
  30. OXYCODONE HYDROCHLORIDE [Concomitant]
     Indication: FLANK PAIN
     Dosage: 5 MG, PRN
     Dates: start: 20101210, end: 20101210
  31. OXYCODONE HYDROCHLORIDE [Concomitant]
     Indication: GROIN PAIN
     Dosage: 5 MG, PRN
     Dates: start: 20101216, end: 20101216
  32. OXYCONTIN [Concomitant]
     Indication: FLANK PAIN
     Dosage: 10 MG, BID
     Dates: start: 20101217, end: 20110105

REACTIONS (2)
  - HYPERKALAEMIA [None]
  - FATIGUE [None]
